FAERS Safety Report 11227674 (Version 2)
Quarter: 2015Q3

REPORT INFORMATION
  Report Type: Spontaneous
  Country: US (occurrence: US)
  Receive Date: 20150630
  Receipt Date: 20150707
  Transmission Date: 20151125
  Serious: No
  Sender: FDA-Public Use
  Company Number: US-HORIZON-DUE-0043-2015

PATIENT
  Age: 61 Year
  Sex: Female

DRUGS (1)
  1. DUEXIS [Suspect]
     Active Substance: FAMOTIDINE\IBUPROFEN
     Indication: RHEUMATIC DISORDER
     Dosage: 1 DF 3 TIMES A DAY AS NEEDED

REACTIONS (2)
  - Nausea [Unknown]
  - Gastrooesophageal reflux disease [Unknown]
